FAERS Safety Report 13817978 (Version 1)
Quarter: 2017Q3

REPORT INFORMATION
  Report Type: Spontaneous
  Country: US (occurrence: US)
  Receive Date: 20170731
  Receipt Date: 20170731
  Transmission Date: 20171127
  Serious: No
  Sender: FDA-Public Use
  Company Number: US-ROCHE-597189

PATIENT
  Age: 69 Year
  Sex: Female

DRUGS (4)
  1. FLU VACCINE [Concomitant]
     Active Substance: INFLUENZA VIRUS VACCINE
     Route: 065
  2. CALCIUM [Concomitant]
     Active Substance: CALCIUM
     Route: 065
  3. BONIVA [Suspect]
     Active Substance: IBANDRONATE SODIUM
     Indication: OSTEOPOROSIS
     Dosage: RECEIVED ONE DOSE
     Route: 042
  4. BONIVA [Suspect]
     Active Substance: IBANDRONATE SODIUM
     Dosage: DOSAGE REPORTED AS X2 DOSES
     Route: 042

REACTIONS (11)
  - Pain [Unknown]
  - Pain in jaw [Unknown]
  - Dry mouth [Not Recovered/Not Resolved]
  - Myalgia [Not Recovered/Not Resolved]
  - Dental caries [Not Recovered/Not Resolved]
  - Fatigue [Not Recovered/Not Resolved]
  - Irritability [Not Recovered/Not Resolved]
  - Tongue blistering [Not Recovered/Not Resolved]
  - Nervousness [Not Recovered/Not Resolved]
  - Oral herpes [Unknown]
  - Dysgeusia [Not Recovered/Not Resolved]

NARRATIVE: CASE EVENT DATE: 200710
